FAERS Safety Report 4788723-6 (Version None)
Quarter: 2005Q4

REPORT INFORMATION
  Report Type: 
  Country: None (occurrence: None)
  Receive Date: 20051005
  Receipt Date: 20050927
  Transmission Date: 20060501
  Serious: Yes (Other)
  Sender: FDA-Public Use
  Company Number: JP-ROCHE-419038

PATIENT
  Age: 77 Year
  Sex: Female

DRUGS (1)
  1. PANALDINE [Suspect]
     Route: 048

REACTIONS (7)
  - ANAEMIA [None]
  - FALL [None]
  - GASTRIC HAEMORRHAGE [None]
  - GASTROINTESTINAL INJURY [None]
  - LACERATION [None]
  - PULMONARY EMBOLISM [None]
  - SHOCK HAEMORRHAGIC [None]
